FAERS Safety Report 17532731 (Version 9)
Quarter: 2020Q3

REPORT INFORMATION
  Report Type: Spontaneous
  Country: US (occurrence: US)
  Receive Date: 20200312
  Receipt Date: 20200803
  Transmission Date: 20201102
  Serious: Yes (Hospitalization, Other)
  Sender: FDA-Public Use
  Company Number: US-PFIZER INC-2020107214

PATIENT
  Age: 64 Year
  Sex: Female
  Weight: 76.19 kg

DRUGS (1)
  1. XELJANZ [Suspect]
     Active Substance: TOFACITINIB CITRATE
     Indication: RHEUMATOID ARTHRITIS
     Dosage: 5 MG, 2X/DAY, [ONE IN THE MORNING ONE IN NIGHT]
     Route: 048

REACTIONS (7)
  - Memory impairment [Unknown]
  - Thrombosis [Recovered/Resolved]
  - Vasculitis [Unknown]
  - Body height decreased [Unknown]
  - Therapeutic product effect incomplete [Unknown]
  - Hypoacusis [Unknown]
  - Weight decreased [Unknown]

NARRATIVE: CASE EVENT DATE: 2020
